FAERS Safety Report 6927554-5 (Version None)
Quarter: 2010Q3

REPORT INFORMATION
  Report Type: 
  Country: None (occurrence: None)
  Receive Date: 20100816
  Receipt Date: 20100816
  Transmission Date: 20110219
  Serious: Yes (Other)
  Sender: FDA-Public Use
  Company Number: None

PATIENT
  Sex: Female
  Weight: 56.6996 kg

DRUGS (2)
  1. COLGATE [Suspect]
     Indication: DENTAL CARIES
     Dosage: USED ON TOOTHBRUSH DAILY - ONCE (THE PAST TEN YEARS)
  2. COLGATE [Suspect]
     Indication: PROPHYLAXIS
     Dosage: USED ON TOOTHBRUSH DAILY - ONCE (THE PAST TEN YEARS)

REACTIONS (1)
  - MALAISE [None]
